FAERS Safety Report 12627989 (Version 1)
Quarter: 2016Q3

REPORT INFORMATION
  Report Type: Spontaneous
  Country: US (occurrence: US)
  Receive Date: 20160807
  Receipt Date: 20160807
  Transmission Date: 20161109
  Serious: No
  Sender: FDA-Public Use
  Company Number: US-TEVA-676028USA

PATIENT
  Age: 44 Year
  Sex: Female

DRUGS (5)
  1. COPAXONE [Suspect]
     Active Substance: GLATIRAMER ACETATE
     Route: 058
     Dates: start: 20160428
  2. CITALOPRAM [Concomitant]
     Active Substance: CITALOPRAM HYDROBROMIDE
  3. CLARITHROMYCIN. [Concomitant]
     Active Substance: CLARITHROMYCIN
  4. MODAFINIL. [Concomitant]
     Active Substance: MODAFINIL
  5. VITAMIN D [Concomitant]
     Active Substance: CHOLECALCIFEROL

REACTIONS (3)
  - Injection site urticaria [Unknown]
  - Drug dose omission [Unknown]
  - Malaise [Unknown]

NARRATIVE: CASE EVENT DATE: 201606
